FAERS Safety Report 8299913 (Version 3)
Quarter: 2012Q4

REPORT INFORMATION
  Report Type: 
  Country: GB (occurrence: GB)
  Receive Date: 20111219
  Receipt Date: 20121221
  Transmission Date: 20130627
  Serious: Yes (Other)
  Sender: FDA-Public Use
  Company Number: GB-ABBOTT-11P-167-0883213-00

PATIENT
  Age: 81 None
  Sex: Male

DRUGS (2)
  1. HUMIRA 40 MG/ 0.8 ML PRE-FILLED SYRINGE [Suspect]
     Indication: RHEUMATOID ARTHRITIS
     Dates: start: 2006, end: 201110
  2. METHOTREXATE [Suspect]
     Indication: RHEUMATOID ARTHRITIS

REACTIONS (4)
  - Skin lesion [Recovered/Resolved]
  - Diffuse large B-cell lymphoma [Recovered/Resolved]
  - Rheumatoid nodule [Recovering/Resolving]
  - Lymphoma [Recovering/Resolving]
